FAERS Safety Report 5853921-7 (Version None)
Quarter: 2008Q3

REPORT INFORMATION
  Report Type: 
  Country: None (occurrence: None)
  Receive Date: 20080822
  Receipt Date: 20080820
  Transmission Date: 20090109
  Serious: Yes (Other)
  Sender: FDA-Public Use
  Company Number: A0743820A

PATIENT
  Age: 52 Year
  Sex: Female
  Weight: 90.9 kg

DRUGS (1)
  1. AVANDIA [Suspect]
     Dosage: 4MG TWICE PER DAY
     Route: 048
     Dates: start: 20050201, end: 20060801

REACTIONS (5)
  - ABASIA [None]
  - ANOREXIA [None]
  - ASTHENIA [None]
  - LOWER LIMB FRACTURE [None]
  - OEDEMA PERIPHERAL [None]
